FAERS Safety Report 17966128 (Version 1)
Quarter: 2020Q3

REPORT INFORMATION
  Report Type: Spontaneous
  Country: DK (occurrence: DK)
  Receive Date: 20200701
  Receipt Date: 20200701
  Transmission Date: 20201103
  Serious: Yes (Life-Threatening, Hospitalization, Other)
  Sender: FDA-Public Use
  Company Number: DK-BRISTOL-MYERS SQUIBB COMPANY-BMS-2020-050613

PATIENT
  Age: 59 Year
  Sex: Male

DRUGS (11)
  1. THIAMINE. [Concomitant]
     Active Substance: THIAMINE
     Indication: VITAMIN SUPPLEMENTATION
     Dosage: 1 DOSAGE FORM, 1 DAY
     Route: 048
     Dates: start: 20190814
  2. ARAX [Concomitant]
     Indication: PAIN
     Dosage: 3000 MILLIGRAM, 1 DAY
     Route: 048
     Dates: start: 20190804
  3. TRAMADOL. [Concomitant]
     Active Substance: TRAMADOL
     Indication: PAIN
     Dosage: 100 MILLIGRAM, 1 DAY
     Route: 048
     Dates: start: 20191106
  4. VITAMINS NOS [Concomitant]
     Active Substance: VITAMINS
     Indication: VITAMIN SUPPLEMENTATION
     Dosage: 1 DOSAGE FORM, 1 DAY
     Route: 048
     Dates: start: 20200203
  5. VENTOLIN [Concomitant]
     Active Substance: ALBUTEROL SULFATE
     Indication: BRONCHOSPASM
     Dosage: 0.2 MILLIGRAM, AS NECESSARY
     Route: 055
     Dates: start: 20190508
  6. PANTOLOC [PANTOPRAZOLE SODIUM SESQUIHYDRATE] [Concomitant]
     Active Substance: PANTOPRAZOLE SODIUM
     Indication: GASTRIC ULCER
     Dosage: 40 MILLIGRAM, 1 DAY
     Route: 048
     Dates: start: 20190511
  7. NIZORAL [Concomitant]
     Active Substance: KETOCONAZOLE
     Indication: DERMATITIS ATOPIC
     Dosage: 10 MILLILITER, 1 WEEK
     Route: 003
     Dates: start: 20190807
  8. ELIQUIS [Suspect]
     Active Substance: APIXABAN
     Indication: THROMBOSIS PROPHYLAXIS
     Dosage: 10 MILLIGRAM,1 DAY
     Route: 048
     Dates: start: 20190930, end: 20200616
  9. GANGIDEN [Concomitant]
     Indication: CONSTIPATION
     Dosage: 1 DOSAGE FORM, AS NECESSARY
     Route: 048
     Dates: start: 20190803
  10. ANORO [Concomitant]
     Active Substance: UMECLIDINIUM BROMIDE\VILANTEROL TRIFENATATE
     Indication: CHRONIC OBSTRUCTIVE PULMONARY DISEASE
     Dosage: 1 DOSAGE FORM, 1 DAY
     Route: 055
     Dates: start: 20190804
  11. APOVIT B?COMBIN [Concomitant]
     Indication: VITAMIN SUPPLEMENTATION
     Dosage: 3 DOSAGE FORM, 1 DAY
     Route: 048
     Dates: start: 20190814

REACTIONS (4)
  - Hemiparesis [Unknown]
  - Facial paresis [Unknown]
  - Cerebral haemorrhage [Not Recovered/Not Resolved]
  - Coma [Unknown]

NARRATIVE: CASE EVENT DATE: 20200616
